FAERS Safety Report 4592313-8 (Version None)
Quarter: 2005Q1

REPORT INFORMATION
  Report Type: 
  Country: None (occurrence: None)
  Receive Date: 20050228
  Receipt Date: 20041201
  Transmission Date: 20050727
  Serious: No
  Sender: FDA-Public Use
  Company Number: US-BRISTOL-MYERS SQUIBB COMPANY-12781480

PATIENT
  Sex: Male

DRUGS (1)
  1. ABILIFY [Suspect]
     Dosage: 10 MG EVERY MORNING (QAM) AND 5 MG (QHS) EVERY NIGHT ORALLY (PO)
     Route: 048

REACTIONS (3)
  - MOVEMENT DISORDER [None]
  - SWELLING FACE [None]
  - VOMITING [None]
